FAERS Safety Report 9184509 (Version 2)
Quarter: 2013Q2

REPORT INFORMATION
  Report Type: Spontaneous
  Country: BR (occurrence: BR)
  Receive Date: 20130322
  Receipt Date: 20130528
  Transmission Date: 20140414
  Serious: Yes (Other)
  Sender: FDA-Public Use
  Company Number: PHHY2013BR027709

PATIENT
  Age: 16 Year
  Sex: Female

DRUGS (1)
  1. TEGRETOL CR [Suspect]
     Indication: NERVOUS SYSTEM DISORDER
     Dosage: 1 DF, DAILY
     Dates: start: 20120619

REACTIONS (1)
  - Drug dependence [Not Recovered/Not Resolved]
